FAERS Safety Report 10431089 (Version 1)
Quarter: 2014Q1

REPORT INFORMATION
  Report Type: Spontaneous
  Country: US (occurrence: None)
  Receive Date: 20130724
  Receipt Date: 20130724
  Transmission Date: 20141002
  Serious: Yes (Other)
  Sender: FDA-Public Use
  Company Number: PHEH2012US012099

PATIENT
  Sex: Female

DRUGS (2)
  1. GLEEVEC [Suspect]
     Indication: CHRONIC MYELOID LEUKAEMIA
     Route: 048
     Dates: start: 20120510
  2. ZOFRAN [Suspect]
     Indication: NAUSEA

REACTIONS (10)
  - Hypertension [None]
  - Feeling abnormal [None]
  - Nausea [None]
  - Vomiting [None]
  - Rash [None]
  - Malaise [None]
  - Lacrimation increased [None]
  - White blood cell count decreased [None]
  - Urticaria [None]
  - Tremor [None]
